FAERS Safety Report 8304849-4 (Version None)
Quarter: 2012Q2

REPORT INFORMATION
  Report Type: 
  Country: None (occurrence: None)
  Receive Date: 20120423
  Receipt Date: 20120411
  Transmission Date: 20120825
  Serious: Yes (Hospitalization, Other)
  Sender: FDA-Public Use
  Company Number: JP-PFIZER INC-2012092679

PATIENT
  Sex: Female
  Weight: 0.92 kg

DRUGS (1)
  1. ARGATROBAN [Suspect]
     Route: 064

REACTIONS (3)
  - FOETAL HEART RATE DECELERATION [None]
  - FOETAL EXPOSURE DURING PREGNANCY [None]
  - FOETAL GROWTH RESTRICTION [None]
